FAERS Safety Report 4319653-1 (Version None)
Quarter: 2004Q1

REPORT INFORMATION
  Report Type: 
  Country: None (occurrence: None)
  Receive Date: 20040316
  Receipt Date: 20040301
  Transmission Date: 20041129
  Serious: Yes (Hospitalization, Other)
  Sender: FDA-Public Use
  Company Number: 701612

PATIENT
  Age: 29 Year
  Sex: Female
  Weight: 90.2658 kg

DRUGS (5)
  1. AMEVIVE [Suspect]
     Indication: PSORIASIS
     Dosage: 10 MG QW IV
     Route: 042
     Dates: start: 20030522, end: 20030804
  2. METHOTREXATE [Concomitant]
  3. FERROUS GLUCONATE [Concomitant]
  4. LOESTRIN 1.5/30 [Concomitant]
  5. PAXIL [Concomitant]

REACTIONS (5)
  - CONDITION AGGRAVATED [None]
  - HODGKIN'S DISEASE [None]
  - INFLAMMATION [None]
  - PLEURAL FIBROSIS [None]
  - PSORIASIS [None]
